FAERS Safety Report 8924580 (Version 1)
Quarter: 2012Q4

REPORT INFORMATION
  Report Type: 
  Country: SE (occurrence: SE)
  Receive Date: 20121126
  Receipt Date: 20121126
  Transmission Date: 20130627
  Serious: Yes (Hospitalization)
  Sender: FDA-Public Use
  Company Number: SE-ROCHE-1159277

PATIENT
  Age: 71 Year
  Sex: Female

DRUGS (4)
  1. MABTHERA [Suspect]
     Indication: RHEUMATOID ARTHRITIS
     Route: 042
     Dates: start: 20060825, end: 20080915
  2. LEVAXIN [Concomitant]
     Route: 065
  3. OMEPRAZOL [Concomitant]
     Route: 065
  4. NORSPAN [Concomitant]
     Dosage: 5 mokrogram/hour
     Route: 065

REACTIONS (2)
  - Myelodysplastic syndrome [Not Recovered/Not Resolved]
  - Bronchopulmonary disease [Not Recovered/Not Resolved]
